FAERS Safety Report 7626470 (Version 2)
Quarter: 2013Q3

REPORT INFORMATION
  Report Type: Spontaneous
  Country: US (occurrence: US)
  Receive Date: 20101013
  Receipt Date: 20130715
  Transmission Date: 20140515
  Serious: Yes (Other)
  Sender: FDA-Public Use
  Company Number: US-ROCHE-691745

PATIENT
  Age: 17 Year
  Sex: Male
  Weight: 81.6 kg

DRUGS (3)
  1. ACCUTANE [Suspect]
     Indication: ACNE CYSTIC
     Dosage: DOSE: FOR 4 WEEKS
     Route: 048
     Dates: start: 20010109, end: 20010323
  2. CEFTIN [Concomitant]
     Indication: ORAL INFECTION
     Route: 065
  3. ADDERALL [Concomitant]

REACTIONS (8)
  - Crohn^s disease [Unknown]
  - Colitis ulcerative [Not Recovered/Not Resolved]
  - Inflammatory bowel disease [Not Recovered/Not Resolved]
  - Intestinal haemorrhage [Unknown]
  - Depression [Unknown]
  - Haemorrhoids [Unknown]
  - Oral infection [Unknown]
  - Chapped lips [Unknown]
